FAERS Safety Report 23378137 (Version 4)
Quarter: 2024Q2

REPORT INFORMATION
  Report Type: Spontaneous
  Country: US (occurrence: US)
  Receive Date: 20240108
  Receipt Date: 20240402
  Transmission Date: 20240716
  Serious: Yes (Hospitalization, Other)
  Sender: FDA-Public Use
  Company Number: US-BRISTOL-MYERS SQUIBB COMPANY-2024-002112

PATIENT
  Age: 62 Year
  Sex: Female

DRUGS (3)
  1. POMALYST [Suspect]
     Active Substance: POMALIDOMIDE
     Indication: Plasma cell myeloma refractory
     Dosage: FREQUENCY: QD X 21 DAYS 7 DAYS OFF?QD FOR 21 DAYS THEN 7 DAYS OFF
     Route: 048
  2. POMALYST [Suspect]
     Active Substance: POMALIDOMIDE
     Route: 048
  3. EMPLICITI [Concomitant]
     Active Substance: ELOTUZUMAB
     Indication: Product used for unknown indication

REACTIONS (10)
  - Dehydration [Unknown]
  - Hypotension [Unknown]
  - COVID-19 [Unknown]
  - Urinary tract infection [Unknown]
  - Alopecia [Unknown]
  - Loss of consciousness [Unknown]
  - Ear pain [Unknown]
  - Epistaxis [Unknown]
  - Dizziness [Unknown]
  - Ear infection [Unknown]

NARRATIVE: CASE EVENT DATE: 20231201
